FAERS Safety Report 23192885 (Version 2)
Quarter: 2024Q2

REPORT INFORMATION
  Report Type: Report from Study
  Country: US (occurrence: US)
  Receive Date: 20231116
  Receipt Date: 20240419
  Transmission Date: 20240715
  Serious: No
  Sender: FDA-Public Use
  Company Number: US-SA-SAC20231114000441

PATIENT
  Age: 55 Year
  Sex: Female

DRUGS (2)
  1. DUPILUMAB [Suspect]
     Active Substance: DUPILUMAB
     Indication: Asthma
     Dosage: 300 MG, QOW
     Route: 058
  2. DUPILUMAB [Suspect]
     Active Substance: DUPILUMAB
     Indication: Nasal polyps

REACTIONS (3)
  - Injection site inflammation [Recovered/Resolved]
  - Injection site erythema [Recovered/Resolved]
  - Inappropriate schedule of product administration [Unknown]
